FAERS Safety Report 6252809-X (Version None)
Quarter: 2009Q3

REPORT INFORMATION
  Report Type: 
  Country: None (occurrence: None)
  Receive Date: 20090701
  Receipt Date: 20090619
  Transmission Date: 20100115
  Serious: Yes (Other)
  Sender: FDA-Public Use
  Company Number: ES-TEVA-199543ISR

PATIENT
  Age: 76 Year
  Sex: Male

DRUGS (1)
  1. AZILECT [Suspect]
     Indication: PARKINSONISM
     Route: 048
     Dates: start: 20090113, end: 20090303

REACTIONS (2)
  - MUSCLE SPASMS [None]
  - TENDON RUPTURE [None]
